FAERS Safety Report 5626421-7 (Version None)
Quarter: 2008Q1

REPORT INFORMATION
  Report Type: 
  Country: None (occurrence: None)
  Receive Date: 20080211
  Receipt Date: 20080128
  Transmission Date: 20080703
  Serious: Yes (Other)
  Sender: FDA-Public Use
  Company Number: POMP-11293

PATIENT
  Age: 25 Month
  Sex: Female
  Weight: 9.9 kg

DRUGS (5)
  1. MYOZYME [Suspect]
     Indication: GLYCOGEN STORAGE DISEASE TYPE II
     Dosage: 20 MG/KG, Q2W, INTRAVENOUS
     Route: 042
     Dates: start: 20061122
  2. EVITOL (TOCOPHERYL ACETATE) [Concomitant]
  3. VITAMIN B COMPLEX (PYRIDOXINE HDYROCHLORIDE, THIAMINE HYDROCHLORIDE, R [Concomitant]
  4. COENZYME Q10 [Concomitant]
  5. VITAMIN E [Concomitant]

REACTIONS (6)
  - ANTIBODY TEST ABNORMAL [None]
  - ELECTROCARDIOGRAM QT PROLONGED [None]
  - ELECTROENCEPHALOGRAM ABNORMAL [None]
  - EPILEPSY [None]
  - HYPERHIDROSIS [None]
  - INFUSION RELATED REACTION [None]
